FAERS Safety Report 12187134 (Version 4)
Quarter: 2018Q2

REPORT INFORMATION
  Report Type: Report from Study
  Country: IT (occurrence: IT)
  Receive Date: 20160317
  Receipt Date: 20180606
  Transmission Date: 20180711
  Serious: Yes (Death, Other)
  Sender: FDA-Public Use
  Company Number: IT-ASTELLAS-2016US003684

PATIENT
  Age: 2 Month
  Sex: Male
  Weight: 3 kg

DRUGS (14)
  1. METRONIDAZOLE. [Concomitant]
     Active Substance: METRONIDAZOLE
     Indication: SEPSIS
     Route: 048
     Dates: start: 20151229, end: 20160115
  2. CEFOTAXIME [Concomitant]
     Active Substance: CEFOTAXIME SODIUM
     Indication: PRODUCT USED FOR UNKNOWN INDICATION
     Dosage: UNK UNK, UNKNOWN FREQ.
     Route: 065
  3. MICAFUNGIN [Suspect]
     Active Substance: MICAFUNGIN
     Indication: SEPSIS
     Dosage: 8 MG/KG, 21 MG, ONCE DAILY
     Route: 042
     Dates: start: 20160103, end: 20160129
  4. GENTAMYCIN                         /00047101/ [Concomitant]
     Active Substance: GENTAMICIN
     Indication: SEPSIS
     Route: 042
     Dates: start: 20160129, end: 20160129
  5. VANCOMYCIN [Concomitant]
     Active Substance: VANCOMYCIN
     Indication: SEPSIS
     Route: 042
     Dates: start: 20160105, end: 20160115
  6. PARACETAMOL [Concomitant]
     Active Substance: ACETAMINOPHEN
     Indication: PYREXIA
  7. MEROPEMEN [Concomitant]
     Indication: SEPSIS
     Route: 042
     Dates: start: 20160105, end: 20160115
  8. OMEPRAZOLE. [Concomitant]
     Active Substance: OMEPRAZOLE
     Indication: ANTACID THERAPY
     Route: 042
     Dates: start: 20160116, end: 20160129
  9. PARACETAMOL [Concomitant]
     Active Substance: ACETAMINOPHEN
     Indication: PAIN
     Route: 042
     Dates: start: 20151229
  10. PENTAGLOBIN [Concomitant]
     Active Substance: HUMAN IMMUNOGLOBULIN G
     Indication: PROPHYLAXIS
     Route: 042
     Dates: start: 20160129, end: 20160129
  11. AMIKACIN. [Concomitant]
     Active Substance: AMIKACIN
     Indication: PRODUCT USED FOR UNKNOWN INDICATION
     Dosage: UNK, UNKNOWN FREQ.
     Route: 065
     Dates: start: 20151224
  12. PERFALGAN [Concomitant]
     Active Substance: ACETAMINOPHEN
     Indication: PAIN
     Dosage: 20 MG, X3
     Route: 042
     Dates: start: 20151229
  13. MEFOXITINE [Concomitant]
     Indication: PROPHYLAXIS
     Route: 042
     Dates: start: 20160129, end: 20160129
  14. CEFTAZIDIME. [Concomitant]
     Active Substance: CEFTAZIDIME
     Indication: PRODUCT USED FOR UNKNOWN INDICATION
     Dosage: UNK UNK, UNKNOWN FREQ.
     Route: 065
     Dates: start: 20151224

REACTIONS (3)
  - Off label use [Unknown]
  - Disseminated intravascular coagulation [Fatal]
  - Septic shock [Fatal]

NARRATIVE: CASE EVENT DATE: 20160129
